FAERS Safety Report 9646467 (Version 2)
Quarter: 2013Q4

REPORT INFORMATION
  Report Type: Report from Study
  Country: US (occurrence: US)
  Receive Date: 20131025
  Receipt Date: 20131025
  Transmission Date: 20140711
  Serious: Yes (Other)
  Sender: FDA-Public Use
  Company Number: US-ABBVIE-13P-163-1132938-00

PATIENT
  Age: 56 Year
  Sex: Female
  Weight: 78.09 kg

DRUGS (19)
  1. HUMIRA [Suspect]
     Indication: RHEUMATOID ARTHRITIS
     Route: 058
     Dates: start: 200908
  2. CRESTOR [Suspect]
     Indication: PRODUCT USED FOR UNKNOWN INDICATION
  3. DENOREX RX [Suspect]
     Indication: PRODUCT USED FOR UNKNOWN INDICATION
  4. ARAVA [Concomitant]
     Indication: RHEUMATOID ARTHRITIS
  5. VALTREX [Concomitant]
     Indication: ORAL HERPES
  6. DIOVAN HCT [Concomitant]
     Indication: HYPERTENSION
     Dosage: 25/325 MG QD
  7. TRAMADOL HCL [Concomitant]
     Indication: PAIN
     Dosage: QID AS REQUIRED
  8. DETROL LA [Concomitant]
     Indication: POLLAKIURIA
  9. NEXIUM [Concomitant]
     Indication: GASTROOESOPHAGEAL REFLUX DISEASE
  10. TRAZODONE HCL [Concomitant]
     Indication: INSOMNIA
     Dosage: 1/2 TAB QHS
  11. PREDNISONE [Concomitant]
     Indication: ARTHRALGIA
  12. NIACIN [Concomitant]
     Indication: PRODUCT USED FOR UNKNOWN INDICATION
  13. BIOTIN [Concomitant]
     Indication: PRODUCT USED FOR UNKNOWN INDICATION
  14. ASPIRIN [Concomitant]
     Indication: PRODUCT USED FOR UNKNOWN INDICATION
  15. COQ10 [Concomitant]
     Indication: PRODUCT USED FOR UNKNOWN INDICATION
  16. FISH OIL [Concomitant]
     Indication: PRODUCT USED FOR UNKNOWN INDICATION
  17. MULTIVITAMIN [Concomitant]
     Indication: VITAMIN SUPPLEMENTATION
  18. CALCIUM [Concomitant]
     Indication: MINERAL SUPPLEMENTATION
  19. VITAMIN D3 [Concomitant]
     Indication: PRODUCT USED FOR UNKNOWN INDICATION

REACTIONS (19)
  - Dizziness [Recovered/Resolved]
  - Chest pain [Recovered/Resolved]
  - Hypoaesthesia [Recovered/Resolved]
  - Fatigue [Recovered/Resolved]
  - Injection site pain [Unknown]
  - Injection site pain [Unknown]
  - Injection site urticaria [Unknown]
  - Injection site bruising [Unknown]
  - Mononucleosis syndrome [Recovered/Resolved]
  - Psoriasis [Unknown]
  - Allergy to metals [Unknown]
  - Hypersensitivity [Unknown]
  - Arthritis [Unknown]
  - Stress [Unknown]
  - Nausea [Unknown]
  - Oral herpes [Unknown]
  - Abdominal discomfort [Unknown]
  - Skin burning sensation [Recovered/Resolved]
  - Coronary artery occlusion [Recovered/Resolved]
